FAERS Safety Report 17698541 (Version 1)
Quarter: 2020Q2

REPORT INFORMATION
  Report Type: Spontaneous
  Country: US (occurrence: US)
  Receive Date: 20200422
  Receipt Date: 20200422
  Transmission Date: 20200714
  Serious: No
  Sender: FDA-Public Use
  Company Number: None

PATIENT
  Age: 12 Year
  Sex: Male

DRUGS (1)
  1. OMNITROPE [Suspect]
     Active Substance: SOMATROPIN
     Indication: HYPOPITUITARISM
     Dosage: ?          OTHER STRENGTH:10MG/1.5ML;?
     Route: 058
     Dates: start: 20190109

REACTIONS (2)
  - Product distribution issue [None]
  - Product storage error [None]

NARRATIVE: CASE EVENT DATE: 20200422
